FAERS Safety Report 21065446 (Version 4)
Quarter: 2023Q1

REPORT INFORMATION
  Report Type: Spontaneous
  Country: US (occurrence: US)
  Receive Date: 20220711
  Receipt Date: 20230208
  Transmission Date: 20230417
  Serious: No
  Sender: FDA-Public Use
  Company Number: US-BRISTOL-MYERS SQUIBB COMPANY-2022-061135

PATIENT
  Age: 66 Year
  Sex: Female

DRUGS (4)
  1. POMALYST [Suspect]
     Active Substance: POMALIDOMIDE
     Indication: Plasma cell myeloma
     Dosage: FREQ: TAKE 1 CAPSULE BY MOUTH WITH WATER, WITH OR WITHOUT FOOD, AT ABOUT THE SAME TIME EACH DAY FOR
     Route: 048
  2. POMALYST [Suspect]
     Active Substance: POMALIDOMIDE
     Route: 048
  3. POMALYST [Suspect]
     Active Substance: POMALIDOMIDE
     Dosage: FREQ: TAKE 1 CAPSULE BY MOUTH WITH WATER, WITH OR WITHOUT FOOD, AT THE SAME TIME EACH DAY FOR 3 WEEK
     Route: 048
  4. POMALYST [Suspect]
     Active Substance: POMALIDOMIDE
     Dosage: TAKE 1 CAPSULE BY MOUTH WITH WATER, W/ OR W/O FOOD AT THE SAME TIME EVERY DAY FOR 3 WEEKS ON THEN 1
     Route: 048
     Dates: start: 20220428

REACTIONS (6)
  - Asthenia [Unknown]
  - Peripheral swelling [Unknown]
  - Nausea [Unknown]
  - Rash [Not Recovered/Not Resolved]
  - Skin disorder [Not Recovered/Not Resolved]
  - Product dose omission issue [Unknown]
